FAERS Safety Report 19442879 (Version 1)
Quarter: 2021Q2

REPORT INFORMATION
  Report Type: Spontaneous
  Country: US (occurrence: US)
  Receive Date: 20210618
  Receipt Date: 20210618
  Transmission Date: 20210717
  Serious: Yes (Hospitalization)
  Sender: FDA-Public Use
  Company Number: None

PATIENT
  Age: 57 Year
  Sex: Female

DRUGS (9)
  1. MORPHINE [Concomitant]
     Active Substance: MORPHINE
  2. TRAMADOLL [Concomitant]
  3. GABEPENTIN [Concomitant]
     Active Substance: GABAPENTIN
  4. LORSARTIN [Concomitant]
  5. DIMETHYL FUM 240MG CAP [Suspect]
     Active Substance: DIMETHYL FUMARATE
     Indication: MULTIPLE SCLEROSIS
     Route: 048
     Dates: start: 20201218
  6. PREMARIN [Concomitant]
     Active Substance: ESTROGENS, CONJUGATED
  7. DULOXETINE. [Concomitant]
     Active Substance: DULOXETINE
  8. FENTANYL. [Concomitant]
     Active Substance: FENTANYL
  9. SUCRALFATE. [Concomitant]
     Active Substance: SUCRALFATE

REACTIONS (5)
  - Hypoaesthesia [None]
  - Paraesthesia [None]
  - Knee operation [None]
  - Condition aggravated [None]
  - Gait inability [None]
